FAERS Safety Report 24823936 (Version 1)
Quarter: 2025Q1

REPORT INFORMATION
  Report Type: Spontaneous
  Country: US (occurrence: US)
  Receive Date: 20250109
  Receipt Date: 20250109
  Transmission Date: 20250409
  Serious: No
  Sender: BAUSCH AND LOMB
  Company Number: US-BAUSCHBL-2025BNL000233

PATIENT
  Age: 61 Year
  Sex: Male

DRUGS (3)
  1. LUMIFY [Suspect]
     Active Substance: BRIMONIDINE TARTRATE
     Indication: Product used for unknown indication
     Route: 047
  2. LUMIFY [Suspect]
     Active Substance: BRIMONIDINE TARTRATE
  3. BORIC ACID\EPHEDRINE HYDROCHLORIDE\MAFENIDE HYDROCHLORIDE\TAURINE\ZINC [Suspect]
     Active Substance: BORIC ACID\EPHEDRINE HYDROCHLORIDE\MAFENIDE HYDROCHLORIDE\TAURINE\ZINC SULFATE
     Indication: Product used for unknown indication
     Route: 065

REACTIONS (4)
  - Burning sensation [Recovered/Resolved]
  - Product packaging issue [Unknown]
  - Wrong product procured [Unknown]
  - Product commingling [Unknown]

NARRATIVE: CASE EVENT DATE: 20240101
